FAERS Safety Report 6691728-1 (Version None)
Quarter: 2010Q2

REPORT INFORMATION
  Report Type: 
  Country: None (occurrence: None)
  Receive Date: 20100415
  Receipt Date: 20090702
  Transmission Date: 20101027
  Serious: No
  Sender: FDA-Public Use
  Company Number: 2009-00442

PATIENT
  Age: 46 Year
  Sex: Female
  Weight: 52.1637 kg

DRUGS (6)
  1. ZICAM COLD REMEDY NASAL GEL [Suspect]
     Dosage: SPORADIC - 5 YEARS, 2003-RECENT, A DAY OR TWO
  2. CALCIUM [Concomitant]
  3. VITAMIN C [Concomitant]
  4. EMERGEN C [Concomitant]
  5. MULTI-VITAMIN [Concomitant]
  6. EVENING PRIMROSE OIL [Concomitant]

REACTIONS (2)
  - AGEUSIA [None]
  - ANOSMIA [None]
